FAERS Safety Report 5056677-3 (Version None)
Quarter: 2006Q2

REPORT INFORMATION
  Report Type: 
  Country: None (occurrence: None)
  Receive Date: 20060616
  Receipt Date: 20060421
  Transmission Date: 20061013
  Serious: No
  Sender: FDA-Public Use
  Company Number: 2006US000898

PATIENT
  Age: 86 Year
  Sex: Female

DRUGS (7)
  1. VESICARE [Suspect]
     Indication: INCONTINENCE
     Dosage: SEE IMAGE
     Route: 048
     Dates: start: 20060418, end: 20060418
  2. VESICARE [Suspect]
     Indication: INCONTINENCE
     Dosage: SEE IMAGE
     Route: 048
     Dates: start: 20060419, end: 20060419
  3. VESICARE [Suspect]
     Indication: INCONTINENCE
     Dosage: SEE IMAGE
     Route: 048
     Dates: start: 20060420, end: 20060420
  4. EYE DROPS (TETRYZOLINE HYDROCHLORIDE) [Concomitant]
     Indication: INCONTINENCE
     Dosage: SEE IMAGE
     Route: 048
     Dates: start: 20060418, end: 20060418
  5. EYE DROPS (TETRYZOLINE HYDROCHLORIDE) [Concomitant]
     Indication: INCONTINENCE
     Dosage: SEE IMAGE
     Route: 048
     Dates: start: 20060419, end: 20060419
  6. EYE DROPS (TETRYZOLINE HYDROCHLORIDE) [Concomitant]
     Indication: INCONTINENCE
     Dosage: SEE IMAGE
     Route: 048
     Dates: start: 20060420, end: 20060420
  7. EYE DROPS (TETRYZOLINE HYDROCHLORIDE) [Concomitant]

REACTIONS (1)
  - DRUG INEFFECTIVE [None]
